FAERS Safety Report 22048401 (Version 1)
Quarter: 2023Q1

REPORT INFORMATION
  Report Type: Spontaneous
  Country: GB (occurrence: GB)
  Receive Date: 20230301
  Receipt Date: 20230301
  Transmission Date: 20230418
  Serious: Yes (Other)
  Sender: FDA-Public Use
  Company Number: None

PATIENT
  Age: 67 Year
  Sex: Female
  Weight: 85.72 kg

DRUGS (2)
  1. RAMIPRIL [Suspect]
     Active Substance: RAMIPRIL
     Indication: Hypertension
     Dosage: GIVEN 10MG RAMIPRIL KEPT IN TILL BP DROPPED, GIVEN 5MG RAMIPRIL
  2. CANDESARTAN [Concomitant]
     Active Substance: CANDESARTAN
     Indication: Hypertension
     Route: 048
     Dates: start: 20210721, end: 20210812

REACTIONS (4)
  - Angioedema [Unknown]
  - Pruritus [Unknown]
  - Back pain [Unknown]
  - Swelling of eyelid [Unknown]
